FAERS Safety Report 22367901 (Version 1)
Quarter: 2023Q2

REPORT INFORMATION
  Report Type: Spontaneous
  Country: IT (occurrence: IT)
  Receive Date: 20230525
  Receipt Date: 20230525
  Transmission Date: 20230722
  Serious: No
  Sender: FDA-Public Use
  Company Number: IT-Blueprint Medicines Corporation-SP-IT-2023-000850

PATIENT
  Sex: Female

DRUGS (4)
  1. AVAPRITINIB [Suspect]
     Active Substance: AVAPRITINIB
     Indication: Systemic mastocytosis
     Route: 065
  2. interferone alfa-2b [Concomitant]
     Indication: Systemic mastocytosis
     Route: 065
  3. corticosteroidi [Concomitant]
     Indication: Systemic mastocytosis
     Route: 065
  4. MIDOSTAURIN [Concomitant]
     Active Substance: MIDOSTAURIN
     Indication: Systemic mastocytosis
     Route: 065

REACTIONS (1)
  - Off label use [Unknown]
